FAERS Safety Report 4775247-5 (Version None)
Quarter: 2005Q3

REPORT INFORMATION
  Report Type: 
  Country: None (occurrence: None)
  Receive Date: 20050921
  Receipt Date: 20050609
  Transmission Date: 20060218
  Serious: Yes (Hospitalization)
  Sender: FDA-Public Use
  Company Number: US-MERCK-0506USA01470

PATIENT
  Age: 75 Year
  Sex: Female
  Weight: 82 kg

DRUGS (8)
  1. VIOXX [Suspect]
     Indication: ARTHRALGIA
     Route: 048
  2. VIOXX [Suspect]
     Route: 048
  3. ATENOLOL [Concomitant]
     Route: 065
  4. HYDROCHLOROTHIAZIDE [Concomitant]
     Route: 065
  5. ZOCOR [Concomitant]
     Route: 065
  6. NEXIUM [Concomitant]
     Route: 065
  7. VIOXX [Suspect]
     Route: 048
  8. VIOXX [Suspect]
     Route: 048

REACTIONS (2)
  - CEREBROVASCULAR ACCIDENT [None]
  - COLONIC HAEMORRHAGE [None]
